FAERS Safety Report 7401782-7 (Version None)
Quarter: 2011Q2

REPORT INFORMATION
  Report Type: 
  Country: None (occurrence: None)
  Receive Date: 20110408
  Receipt Date: 20110401
  Transmission Date: 20111010
  Serious: Yes (Other)
  Sender: FDA-Public Use
  Company Number: US-PFIZER INC-2011072976

PATIENT
  Sex: Female

DRUGS (2)
  1. DEPO-MEDROL [Suspect]
     Dosage: UNK
     Dates: start: 20101201
  2. ISOVUE-128 [Concomitant]
     Dosage: UNK

REACTIONS (2)
  - HEADACHE [None]
  - ANAPHYLACTIC SHOCK [None]
